FAERS Safety Report 12243540 (Version 4)
Quarter: 2016Q3

REPORT INFORMATION
  Report Type: Spontaneous
  Country: IT (occurrence: IT)
  Receive Date: 20160406
  Receipt Date: 20160722
  Transmission Date: 20161109
  Serious: Yes (Hospitalization)
  Sender: FDA-Public Use
  Company Number: IT-BRISTOL-MYERS SQUIBB COMPANY-BMS-2016-023972

PATIENT
  Age: 58 Year
  Sex: Male

DRUGS (2)
  1. METFORMIN HYDROCHLORIDE. [Suspect]
     Active Substance: METFORMIN HYDROCHLORIDE
     Indication: WEIGHT CONTROL
     Dosage: 500 MG, UNK
     Route: 048
     Dates: start: 20160118
  2. XANAX [Suspect]
     Active Substance: ALPRAZOLAM
     Indication: WEIGHT CONTROL
     Dosage: 0.50 MG, UNK
     Route: 048
     Dates: start: 20160118

REACTIONS (4)
  - Off label use [Unknown]
  - Intentional overdose [Unknown]
  - Drug abuse [Unknown]
  - Sopor [Unknown]

NARRATIVE: CASE EVENT DATE: 20160118
